FAERS Safety Report 8346194-7 (Version None)
Quarter: 2012Q2

REPORT INFORMATION
  Report Type: 
  Country: None (occurrence: None)
  Receive Date: 20120509
  Receipt Date: 20120504
  Transmission Date: 20120825
  Serious: Yes (Other)
  Sender: FDA-Public Use
  Company Number: US-PFIZER INC-2012110247

PATIENT
  Sex: Female
  Weight: 54 kg

DRUGS (5)
  1. FEMARA [Suspect]
     Indication: BREAST CANCER
     Dosage: UNK
  2. AROMASIN [Suspect]
     Indication: BREAST CANCER
     Dosage: 25 MG, DAILY
     Dates: start: 20090101, end: 20120101
  3. TAMOXIFEN CITRATE [Suspect]
     Indication: BREAST CANCER
     Dosage: UNK
  4. ARIMIDEX [Suspect]
     Indication: BREAST CANCER
     Dosage: UNK
  5. XALATAN [Concomitant]
     Indication: GLAUCOMA
     Dosage: 5 MG, DAILY

REACTIONS (3)
  - PRURITUS [None]
  - URINARY TRACT INFECTION [None]
  - RASH [None]
